FAERS Safety Report 5933227-8 (Version None)
Quarter: 2008Q4

REPORT INFORMATION
  Report Type: 
  Country: None (occurrence: None)
  Receive Date: 20081024
  Receipt Date: 20080813
  Transmission Date: 20090506
  Serious: Yes (Hospitalization, Other)
  Sender: FDA-Public Use
  Company Number: 361569

PATIENT
  Age: 65 Year
  Sex: Female

DRUGS (8)
  1. ESTRADIOL [Suspect]
     Dosage: TOPICAL APPLICATION 0.5 MG/DAY
     Route: 061
  2. TACROLIMUS [Suspect]
     Indication: RENAL TRANSPLANT
     Dosage: 9 MG/DAY
  3. MYCOPHENOLIC ACID [Concomitant]
  4. PREDNISOLONE [Concomitant]
  5. LISINOPRIL [Concomitant]
  6. ATORVASTATIN CALCIUM [Concomitant]
  7. LEVOTHYROXINE SODIUM [Concomitant]
  8. ALPRAZOLAM [Concomitant]

REACTIONS (4)
  - COMPLICATIONS OF TRANSPLANTED KIDNEY [None]
  - DRUG INTERACTION [None]
  - DRUG LEVEL INCREASED [None]
  - RENAL IMPAIRMENT [None]
